FAERS Safety Report 6977163-7 (Version None)
Quarter: 2010Q3

REPORT INFORMATION
  Report Type: 
  Country: None (occurrence: None)
  Receive Date: 20100910
  Receipt Date: 20100902
  Transmission Date: 20110219
  Serious: Yes (Other)
  Sender: FDA-Public Use
  Company Number: US-PFIZER INC-2010095570

PATIENT
  Sex: Male
  Weight: 76.19 kg

DRUGS (1)
  1. CHANTIX [Suspect]
     Indication: SMOKING CESSATION THERAPY
     Dosage: 0.5 MG, 1X/DAY
     Route: 048
     Dates: start: 20100601, end: 20100701

REACTIONS (4)
  - MOOD ALTERED [None]
  - PERSONALITY CHANGE [None]
  - RENAL DISORDER [None]
  - SLEEP DISORDER [None]
